FAERS Safety Report 6963715-7 (Version None)
Quarter: 2010Q3

REPORT INFORMATION
  Report Type: 
  Country: None (occurrence: None)
  Receive Date: 20100830
  Receipt Date: 20100819
  Transmission Date: 20110219
  Serious: Yes (Other)
  Sender: FDA-Public Use
  Company Number: 675215

PATIENT
  Sex: Male

DRUGS (3)
  1. VINORELBINE TARTRATE [Suspect]
     Indication: PRODUCT USED FOR UNKNOWN INDICATION
     Dosage: 60 MG MILLIGRAM(S), INTRAVENOUS
     Route: 042
     Dates: start: 20090717, end: 20090717
  2. CISPLATIN [Suspect]
     Indication: LUNG NEOPLASM MALIGNANT
     Dosage: INTRAVENOUS
     Route: 042
     Dates: start: 20090717
  3. NAVELBINE [Suspect]
     Indication: LUNG NEOPLASM MALIGNANT
     Dosage: 160 MG MILLIGRAM(S), ORAL; 120 MG MILLIGRAM(S), ORAL
     Route: 048
     Dates: start: 20090724

REACTIONS (13)
  - DIARRHOEA [None]
  - INFUSION SITE EROSION [None]
  - INFUSION SITE EXTRAVASATION [None]
  - LUNG NEOPLASM MALIGNANT [None]
  - MALIGNANT NEOPLASM PROGRESSION [None]
  - MENTAL DISORDER [None]
  - METASTASES TO BONE [None]
  - MUSCLE TWITCHING [None]
  - OVERDOSE [None]
  - SCAR [None]
  - SCREAMING [None]
  - VEIN PAIN [None]
  - VOMITING [None]
